FAERS Safety Report 16398652 (Version 1)
Quarter: 2019Q2

REPORT INFORMATION
  Report Type: Spontaneous
  Country: US (occurrence: US)
  Receive Date: 20190605
  Receipt Date: 20190605
  Transmission Date: 20190711
  Serious: Yes (Hospitalization)
  Sender: FDA-Public Use
  Company Number: None

PATIENT
  Sex: Female

DRUGS (5)
  1. DICLOFENAC GEL 1% [Concomitant]
     Active Substance: DICLOFENAC
  2. VALACYCLOVIR 1MG [Concomitant]
  3. TRAZODONE [Concomitant]
     Active Substance: TRAZODONE HYDROCHLORIDE
  4. XELJANZ [Suspect]
     Active Substance: TOFACITINIB CITRATE
     Indication: RHEUMATOID ARTHRITIS
     Route: 048
     Dates: start: 20181204
  5. METHOTREXATE 2.5MG [Concomitant]
     Active Substance: METHOTREXATE

REACTIONS (2)
  - Pain [None]
  - Abdominal operation [None]
